FAERS Safety Report 16071067 (Version 1)
Quarter: 2019Q1

REPORT INFORMATION
  Report Type: Spontaneous
  Country: US (occurrence: US)
  Receive Date: 20190314
  Receipt Date: 20190314
  Transmission Date: 20190418
  Serious: Yes (Death)
  Sender: FDA-Public Use
  Company Number: US-TEVA-2019-US-1023357

PATIENT
  Sex: Female
  Weight: 49.1 kg

DRUGS (5)
  1. PRILOSEC [Concomitant]
     Active Substance: OMEPRAZOLE MAGNESIUM
  2. TRAZODONE [Concomitant]
     Active Substance: TRAZODONE HYDROCHLORIDE
  3. CLOZAPINE. [Suspect]
     Active Substance: CLOZAPINE
     Indication: SCHIZOPHRENIA
     Route: 065
     Dates: start: 2011
  4. HALDOL [Concomitant]
     Active Substance: HALOPERIDOL
  5. KLONOPIN [Concomitant]
     Active Substance: CLONAZEPAM

REACTIONS (1)
  - Death [Fatal]
